FAERS Safety Report 4641788-4 (Version None)
Quarter: 2005Q2

REPORT INFORMATION
  Report Type: 
  Country: None (occurrence: None)
  Receive Date: 20050421
  Receipt Date: 20040130
  Transmission Date: 20051028
  Serious: Yes (Hospitalization, Disabling, Other)
  Sender: FDA-Public Use
  Company Number: US-MERCK-0402USA00068

PATIENT
  Age: 50 Year
  Sex: Male
  Weight: 84 kg

DRUGS (16)
  1. VIOXX [Suspect]
     Indication: RHEUMATOID ARTHRITIS
     Route: 048
     Dates: start: 19990101
  2. METHOTREXATE [Concomitant]
     Indication: RHEUMATOID ARTHRITIS
     Route: 065
     Dates: start: 19930101
  3. PREDNISONE [Concomitant]
     Route: 048
  4. ATENOLOL [Concomitant]
     Indication: HYPERTENSION
     Route: 065
     Dates: start: 20001201
  5. PERCOCET [Concomitant]
     Indication: PAIN
     Route: 065
     Dates: start: 20010101
  6. FOLIC ACID [Concomitant]
     Indication: ARTHRITIS
     Route: 065
  7. AMBIEN [Concomitant]
     Route: 065
  8. ISMO [Concomitant]
     Route: 065
  9. OXYCODONE HYDROCHLORIDE [Concomitant]
     Route: 065
  10. ZOCOR [Suspect]
     Route: 048
     Dates: start: 20010115, end: 20020501
  11. ZOCOR [Suspect]
     Route: 048
     Dates: end: 20041101
  12. MOTRIN [Concomitant]
     Route: 065
  13. TEMAZEPAM [Concomitant]
     Route: 065
  14. VITAMINS (UNSPECIFIED) [Concomitant]
     Route: 065
  15. CLARITIN REDITABS [Concomitant]
     Route: 065
  16. ZANTAC [Concomitant]
     Route: 048

REACTIONS (32)
  - ANGINA PECTORIS [None]
  - ATELECTASIS [None]
  - ATRIAL FIBRILLATION [None]
  - BLOOD CHOLESTEROL INCREASED [None]
  - BLOOD CREATININE INCREASED [None]
  - BRADYCARDIA [None]
  - CORONARY ARTERY ATHEROSCLEROSIS [None]
  - CORONARY ARTERY DISEASE [None]
  - CORONARY ARTERY REOCCLUSION [None]
  - CORONARY BYPASS THROMBOSIS [None]
  - DEEP VEIN THROMBOSIS [None]
  - DIVERTICULITIS INTESTINAL HAEMORRHAGIC [None]
  - DIVERTICULUM [None]
  - DIZZINESS [None]
  - FATIGUE [None]
  - HAEMORRHOIDS [None]
  - HYPERLIPIDAEMIA [None]
  - HYPERTENSION [None]
  - INTERVERTEBRAL DISC DEGENERATION [None]
  - MEDICAL DEVICE COMPLICATION [None]
  - MYALGIA [None]
  - MYOCARDIAL INFARCTION [None]
  - NAUSEA [None]
  - POLYP [None]
  - PYREXIA [None]
  - RENAL FAILURE CHRONIC [None]
  - RESPIRATORY DISTRESS [None]
  - SIGMOIDITIS [None]
  - VASCULAR GRAFT OCCLUSION [None]
  - VISUAL ACUITY REDUCED [None]
  - WEIGHT DECREASED [None]
  - WOUND DEHISCENCE [None]
